FAERS Safety Report 6475123-6 (Version None)
Quarter: 2009Q4

REPORT INFORMATION
  Report Type: 
  Country: None (occurrence: None)
  Receive Date: 20091204
  Receipt Date: 20090605
  Transmission Date: 20100525
  Serious: Yes (Other)
  Sender: FDA-Public Use
  Company Number: AU-ELI_LILLY_AND_COMPANY-AU200904000263

PATIENT
  Sex: Female

DRUGS (7)
  1. CYMBALTA [Suspect]
     Indication: PAIN
     Dosage: 60 MG, DAILY (1/D)
     Route: 065
     Dates: start: 20090122
  2. NEXIUM [Concomitant]
     Dosage: 20, DAILY (1/D)
     Dates: start: 20070101
  3. TEMAZE [Concomitant]
     Dates: start: 20070101
  4. DICLOFENAC [Concomitant]
     Dosage: 50, AS NEEDED
     Dates: start: 20070101
  5. COLGOUT [Concomitant]
     Dosage: UNK, AS NEEDED
     Dates: start: 20070101
  6. NALSPAN [Concomitant]
     Dosage: 20, WEEKLY (1/W)
     Dates: start: 20070101
  7. METHOBLASTIN [Concomitant]
     Dosage: 10,  UNKNOWN
     Route: 065
     Dates: start: 20070101

REACTIONS (2)
  - CRYING [None]
  - MAJOR DEPRESSION [None]
